FAERS Safety Report 15225648 (Version 1)
Quarter: 2018Q3

REPORT INFORMATION
  Report Type: Spontaneous
  Country: US (occurrence: US)
  Receive Date: 20180801
  Receipt Date: 20180801
  Transmission Date: 20181010
  Serious: No
  Sender: FDA-Public Use
  Company Number: US-009507513-1807USA007815

PATIENT
  Age: 38 Year
  Sex: Female
  Weight: 70.75 kg

DRUGS (2)
  1. NUVARING [Suspect]
     Active Substance: ETHINYL ESTRADIOL\ETONOGESTREL
     Dosage: 1 RING, 3 WEEKS ON/1 WEEK OFF
     Route: 067
     Dates: start: 2016
  2. NUVARING [Suspect]
     Active Substance: ETHINYL ESTRADIOL\ETONOGESTREL
     Dosage: 1 RING, 3 WEEKS ON/1 WEEK OFF
     Route: 067
     Dates: start: 20180715

REACTIONS (3)
  - Product quality issue [Recovering/Resolving]
  - Device expulsion [Recovering/Resolving]
  - Medical device site discomfort [Recovering/Resolving]

NARRATIVE: CASE EVENT DATE: 201807
